FAERS Safety Report 5759191-2 (Version None)
Quarter: 2008Q2

REPORT INFORMATION
  Report Type: 
  Country: None (occurrence: None)
  Receive Date: 20080604
  Receipt Date: 20080526
  Transmission Date: 20081010
  Serious: Yes (Hospitalization, Other)
  Sender: FDA-Public Use
  Company Number: JP-BAXTER-2008BH005067

PATIENT
  Age: 75 Year
  Sex: Male

DRUGS (4)
  1. DIANEAL [Suspect]
     Indication: RENAL FAILURE CHRONIC
     Route: 033
     Dates: start: 20071201
  2. EXTRANEAL [Suspect]
     Indication: PERITONEAL DIALYSIS
     Route: 033
     Dates: start: 20071201
  3. ANTIHYPERTENSIVES [Suspect]
     Indication: HYPERTENSION
     Dosage: DOSE UNIT:UNKNOWN
  4. ANTIDIABETICS [Suspect]
     Indication: DIABETES MELLITUS
     Dosage: DOSE UNIT:UNKNOWN

REACTIONS (2)
  - PERITONITIS [None]
  - PNEUMONIA [None]
